FAERS Safety Report 9579722 (Version 2)
Quarter: 2013Q4

REPORT INFORMATION
  Report Type: Spontaneous
  Country: US (occurrence: US)
  Receive Date: 20131002
  Receipt Date: 20131022
  Transmission Date: 20140711
  Serious: No
  Sender: FDA-Public Use
  Company Number: US-BIOGENIDEC-2013BI092543

PATIENT
  Age: 25 Year
  Sex: Female

DRUGS (2)
  1. TYSABRI [Suspect]
     Indication: MULTIPLE SCLEROSIS
     Route: 042
     Dates: start: 20130305
  2. ADDERALL [Concomitant]

REACTIONS (3)
  - Fatigue [Not Recovered/Not Resolved]
  - Drug effect decreased [Unknown]
  - Asthenia [Unknown]
